FAERS Safety Report 9175627 (Version 1)
Quarter: 2012Q4

REPORT INFORMATION
  Report Type: 
  Country: BR (occurrence: BR)
  Receive Date: 20120912
  Receipt Date: 20120912
  Transmission Date: 20130627
  Serious: Yes (Other)
  Sender: FDA-Public Use
  Company Number: BR-ROCHE-1122384

PATIENT
  Age: 42 Year
  Sex: Female

DRUGS (1)
  1. MABTHERA [Suspect]
     Indication: NEPHRITIS
     Route: 042

REACTIONS (2)
  - Immunoglobulins decreased [Not Recovered/Not Resolved]
  - Urinary tract infection [Not Recovered/Not Resolved]
